FAERS Safety Report 8199535-8 (Version None)
Quarter: 2012Q1

REPORT INFORMATION
  Report Type: 
  Country: None (occurrence: None)
  Receive Date: 20120310
  Receipt Date: 20120306
  Transmission Date: 20120608
  Serious: No
  Sender: FDA-Public Use
  Company Number: US-PFIZER INC-2012049808

PATIENT
  Sex: Female

DRUGS (3)
  1. TOPAMAX [Interacting]
     Dosage: UNK
  2. NEURONTIN [Concomitant]
     Dosage: UNK
  3. PRISTIQ [Suspect]
     Dosage: UNK

REACTIONS (4)
  - MALAISE [None]
  - PANIC ATTACK [None]
  - MUSCLE TWITCHING [None]
  - DRUG INTERACTION [None]
